FAERS Safety Report 7921444-7 (Version None)
Quarter: 2011Q4

REPORT INFORMATION
  Report Type: 
  Country: None (occurrence: None)
  Receive Date: 20111117
  Receipt Date: 20111108
  Transmission Date: 20120403
  Serious: Yes (Other)
  Sender: FDA-Public Use
  Company Number: CN-PFIZER INC-2011275040

PATIENT
  Age: 77 Year
  Sex: Male

DRUGS (3)
  1. TIMOLOL MALEATE [Concomitant]
     Dosage: LEFT EYE
     Route: 047
  2. XALATAN [Suspect]
     Dosage: UNK
     Route: 047
     Dates: start: 20041101, end: 20041101
  3. XALATAN [Suspect]
     Indication: OCULAR HYPERTENSION
     Dosage: UNK
     Route: 047
     Dates: start: 20040901, end: 20041001

REACTIONS (1)
  - CORNEAL LESION [None]
